FAERS Safety Report 12865434 (Version 1)
Quarter: 2016Q4

REPORT INFORMATION
  Report Type: Spontaneous
  Country: US (occurrence: US)
  Receive Date: 20161018
  Receipt Date: 20161018
  Transmission Date: 20170207
  Serious: Yes (Other)
  Sender: FDA-Public Use
  Company Number: None

PATIENT
  Age: 67 Year
  Sex: Male
  Weight: 68.5 kg

DRUGS (1)
  1. EPOETIN ALFA [Suspect]
     Active Substance: ERYTHROPOIETIN
     Indication: ANAEMIA
     Dosage: 2000 UNITS QWEEK SQ
     Route: 058
     Dates: start: 20160420, end: 20160420

REACTIONS (1)
  - Seizure [None]

NARRATIVE: CASE EVENT DATE: 20160421
